FAERS Safety Report 22145447 (Version 2)
Quarter: 2023Q2

REPORT INFORMATION
  Report Type: Spontaneous
  Country: HR (occurrence: HR)
  Receive Date: 20230328
  Receipt Date: 20230407
  Transmission Date: 20230721
  Serious: Yes (Hospitalization, Other)
  Sender: FDA-Public Use
  Company Number: HR-BIOVITRUM-2023-HR-007417

PATIENT
  Sex: Female

DRUGS (5)
  1. DOPTELET [Suspect]
     Active Substance: AVATROMBOPAG MALEATE
     Indication: Immune thrombocytopenia
     Dosage: AS NECESSARY
     Route: 048
     Dates: start: 20220916, end: 20221020
  2. DOPTELET [Suspect]
     Active Substance: AVATROMBOPAG MALEATE
     Dosage: 1X20 MG DAILY, LATER 1X40 MG DAILY, PER OS
     Dates: start: 20220916, end: 20220930
  3. IV IMUNOGLOBULINS [Concomitant]
     Indication: Product used for unknown indication
     Dosage: IV
     Route: 042
     Dates: start: 20220926, end: 20220930
  4. PLATELETS [Concomitant]
     Active Substance: HUMAN PLATELET, ALLOGENIC
     Indication: Product used for unknown indication
     Dates: start: 20221014
  5. FERRUM [Concomitant]
     Indication: Product used for unknown indication
     Dosage: IV
     Dates: start: 20221017

REACTIONS (2)
  - Haemorrhage [Recovered/Resolved]
  - Off label use [Recovered/Resolved]

NARRATIVE: CASE EVENT DATE: 20220916
